FAERS Safety Report 6873099-0 (Version None)
Quarter: 2010Q3

REPORT INFORMATION
  Report Type: 
  Country: None (occurrence: None)
  Receive Date: 20100723
  Receipt Date: 20090902
  Transmission Date: 20110219
  Serious: No
  Sender: FDA-Public Use
  Company Number: US-PFIZER INC-2008083131

PATIENT
  Sex: Female

DRUGS (9)
  1. CHANTIX [Suspect]
     Indication: TOBACCO ABUSE
  2. CHANTIX [Suspect]
     Indication: CHRONIC OBSTRUCTIVE PULMONARY DISEASE
  3. RANITIDINE [Concomitant]
     Dosage: 150 MG, 2X/DAY
  4. CELEBREX [Concomitant]
     Dosage: 200 MG, 1X/DAY
  5. IBUPROFEN [Concomitant]
     Dosage: 800 MG, 3X/DAY
     Route: 048
  6. LIDOCAINE HYDROCHLORIDE [Concomitant]
  7. LISINOPRIL [Concomitant]
  8. LEVOTHYROXINE [Concomitant]
  9. VALIUM [Concomitant]

REACTIONS (2)
  - TOBACCO USER [None]
  - UNEVALUABLE EVENT [None]
